FAERS Safety Report 6079213-1 (Version None)
Quarter: 2009Q1

REPORT INFORMATION
  Report Type: 
  Country: None (occurrence: None)
  Receive Date: 20090216
  Receipt Date: 20090212
  Transmission Date: 20090719
  Serious: Yes (Other)
  Sender: FDA-Public Use
  Company Number: B0559252A

PATIENT
  Sex: Female

DRUGS (1)
  1. AUGMENTIN '125' [Suspect]
     Indication: DRUG USE FOR UNKNOWN INDICATION
     Route: 048

REACTIONS (4)
  - ANAPHYLACTIC SHOCK [None]
  - HYPOTENSION [None]
  - LIP SWELLING [None]
  - RASH PRURITIC [None]
